FAERS Safety Report 4565183-1 (Version None)
Quarter: 2005Q1

REPORT INFORMATION
  Report Type: 
  Country: None (occurrence: None)
  Receive Date: 20050127
  Receipt Date: 20050127
  Transmission Date: 20050727
  Serious: Yes (Hospitalization)
  Sender: FDA-Public Use
  Company Number: None

PATIENT
  Age: 47 Year
  Sex: Male
  Weight: 57.1532 kg

DRUGS (9)
  1. CISPLATIN [Suspect]
     Indication: SQUAMOUS CELL CARCINOMA
     Dosage: 100 MG/M2 DAY 1 AND 22
     Dates: start: 20041122, end: 20041220
  2. EXTERNAL RADIATION [Suspect]
     Indication: SQUAMOUS CELL CARCINOMA
     Dosage: 1.864 FOR 65 WEEKS 1 DAY 1.564 TWICE A DAY FOR 2.5 WEEKS
     Dates: start: 20041122, end: 20050106
  3. NYSTATIN [Concomitant]
  4. FENTANYL [Concomitant]
  5. HYDROCODONE [Concomitant]
  6. BENADRYL [Concomitant]
  7. UDOCAINE [Concomitant]
  8. SCOPOLAMINE [Concomitant]
  9. CENA-K [Concomitant]

REACTIONS (1)
  - DEHYDRATION [None]
